FAERS Safety Report 5322222-8 (Version None)
Quarter: 2007Q2

REPORT INFORMATION
  Report Type: 
  Country: None (occurrence: None)
  Receive Date: 20070511
  Receipt Date: 20070502
  Transmission Date: 20071010
  Serious: Yes (Hospitalization)
  Sender: FDA-Public Use
  Company Number: IE-ROCHE-495842

PATIENT
  Age: 13 Year
  Sex: Female

DRUGS (2)
  1. ROACCUTANE [Suspect]
     Indication: ACNE
     Route: 065
     Dates: start: 20061101
  2. ROACCUTANE [Suspect]
     Route: 065
     Dates: start: 20060101, end: 20060601

REACTIONS (4)
  - CROUP INFECTIOUS [None]
  - DRY THROAT [None]
  - DYSPNOEA [None]
  - RESPIRATORY DISORDER [None]
